FAERS Safety Report 12548275 (Version 1)
Quarter: 2016Q3

REPORT INFORMATION
  Report Type: Spontaneous
  Country: US (occurrence: None)
  Receive Date: 20160711
  Receipt Date: 20160711
  Transmission Date: 20161109
  Serious: No
  Sender: FDA-Public Use
  Company Number: None

PATIENT
  Age: 55 Year
  Sex: Female
  Weight: 52.62 kg

DRUGS (7)
  1. VITAMIN D [Concomitant]
     Active Substance: CHOLECALCIFEROL
  2. CALCIUM [Concomitant]
     Active Substance: CALCIUM
  3. MULTIVITAMIN [Concomitant]
     Active Substance: VITAMINS
  4. AMPYRA [Suspect]
     Active Substance: DALFAMPRIDINE
     Dosage: EVERY 12 HOURS TAKEN BY MOUTH
     Route: 048
  5. AUBAGIO [Concomitant]
     Active Substance: TERIFLUNOMIDE
  6. LOW DOSE ASPIRIN [Concomitant]
     Active Substance: ASPIRIN
  7. VITAMIN B12 [Concomitant]
     Active Substance: CYANOCOBALAMIN

REACTIONS (1)
  - Weight decreased [None]
